FAERS Safety Report 8276931-1 (Version None)
Quarter: 2012Q2

REPORT INFORMATION
  Report Type: 
  Country: None (occurrence: None)
  Receive Date: 20120412
  Receipt Date: 20120405
  Transmission Date: 20120825
  Serious: Yes (Hospitalization)
  Sender: FDA-Public Use
  Company Number: US-ROXANE LABORATORIES, INC.-2012-RO-00998RO

PATIENT
  Sex: Male
  Weight: 14 kg

DRUGS (12)
  1. HYDROXYZINE [Concomitant]
     Indication: INSOMNIA
     Dosage: 10 MG
  2. LEVETIRACETAM [Suspect]
     Indication: CONVULSION
     Dosage: 1400 MG
  3. LEVETIRACETAM [Suspect]
     Indication: ATONIC SEIZURES
  4. LEVETIRACETAM [Suspect]
     Indication: PARTIAL SEIZURES
  5. DOCUSATE SODIUM [Concomitant]
     Indication: CONSTIPATION
     Dosage: 100 MG
  6. ZANTAC [Concomitant]
     Indication: GASTROOESOPHAGEAL REFLUX DISEASE
     Dosage: 30 MG
  7. BANZEL [Concomitant]
     Indication: LENNOX-GASTAUT SYNDROME
  8. LEVETIRACETAM [Suspect]
     Indication: LENNOX-GASTAUT SYNDROME
  9. BANZEL [Concomitant]
     Indication: CONVULSION
     Dosage: 80 MG
  10. MELATONIN [Concomitant]
     Indication: INSOMNIA
     Dosage: 10 MG
  11. ASPIRIN [Concomitant]
     Indication: PROPHYLAXIS
     Dosage: 81 MG
  12. MIRALEX [Concomitant]
     Indication: CONSTIPATION
     Dosage: 34 G

REACTIONS (4)
  - COORDINATION ABNORMAL [None]
  - RASH [None]
  - CONDITION AGGRAVATED [None]
  - RIGHT VENTRICULAR HYPERTROPHY [None]
